FAERS Safety Report 7969586 (Version 3)
Quarter: 2012Q4

REPORT INFORMATION
  Report Type: 
  Country: DK (occurrence: DK)
  Receive Date: 20110601
  Receipt Date: 20121213
  Transmission Date: 20130627
  Serious: Yes (Hospitalization)
  Sender: FDA-Public Use
  Company Number: DK-B.I. PHARMACEUTICALS,INC./RIDGEFIELD-2011-SW-00227DB

PATIENT
  Age: 73 Year
  Sex: Male
  Weight: 81 kg

DRUGS (12)
  1. ASASANTIN RETARD [Suspect]
     Indication: ESSENTIAL THROMBOCYTHAEMIA
     Dosage: 1 DF dosage form
     Route: 048
     Dates: start: 200503, end: 20090921
  2. ASASANTIN RETARD [Suspect]
     Dosage: Strength 1df. Daily dose: 2df
     Route: 048
     Dates: start: 20030127, end: 200503
  3. ASPIRIN [Suspect]
     Indication: ESSENTIAL THROMBOCYTHAEMIA
     Dosage: 150 mg
     Route: 048
     Dates: start: 20030127, end: 200303
  4. ASPIRIN [Suspect]
     Dosage: 150 mg
     Route: 048
     Dates: start: 20000628, end: 20030125
  5. ASPIRIN [Suspect]
     Dosage: 75 mg
     Route: 048
     Dates: start: 20091230, end: 20100708
  6. ANAGRELIDE [Suspect]
     Indication: ESSENTIAL THROMBOCYTHAEMIA
     Dosage: 1 mg
     Route: 048
     Dates: start: 20091109, end: 20091117
  7. ANAGRELIDE [Suspect]
     Dosage: Alternating between a daily dose of 1 mg and 3.5 mg
     Route: 048
     Dates: start: 20000628, end: 20090602
  8. ANAGRELIDE [Suspect]
     Dosage: 2 mg
     Route: 048
     Dates: start: 20090602, end: 20090921
  9. HYDROXYUREA [Suspect]
     Indication: ESSENTIAL THROMBOCYTHAEMIA
     Dosage: 500 mg
     Route: 048
     Dates: start: 20091012, end: 20091102
  10. HYDROXYUREA [Suspect]
     Dosage: 500 mg
     Route: 048
     Dates: start: 20090921, end: 20090922
  11. CITALOPRAM HYDROBROMIDE [Concomitant]
     Indication: DEPRESSION
     Dosage: 10 mg
     Route: 048
     Dates: start: 20030127
  12. DANAZOL [Concomitant]
     Indication: ANAEMIA
     Dosage: 200 mg
     Route: 048
     Dates: start: 20091001, end: 20091110

REACTIONS (2)
  - Pericardial effusion [Recovered/Resolved with Sequelae]
  - Cardiomyopathy [Recovered/Resolved with Sequelae]
